FAERS Safety Report 14518889 (Version 1)
Quarter: 2018Q1

REPORT INFORMATION
  Report Type: Spontaneous
  Country: CO (occurrence: CO)
  Receive Date: 20180212
  Receipt Date: 20180212
  Transmission Date: 20180509
  Serious: Yes (Other)
  Sender: FDA-Public Use
  Company Number: CO-PFIZER INC-2018061151

PATIENT
  Sex: Female

DRUGS (1)
  1. LYRICA [Suspect]
     Active Substance: PREGABALIN
     Dosage: UNK

REACTIONS (6)
  - Encephalopathy [Unknown]
  - Coordination abnormal [Unknown]
  - Diabetes mellitus [Unknown]
  - Hypertension [Unknown]
  - Renal failure [Unknown]
  - Disorientation [Unknown]
